FAERS Safety Report 10247013 (Version 1)
Quarter: 2014Q2

REPORT INFORMATION
  Report Type: Spontaneous
  Country: US (occurrence: None)
  Receive Date: 20140617
  Receipt Date: 20140617
  Transmission Date: 20141212
  Serious: Yes (Other)
  Sender: FDA-Public Use
  Company Number: 2014US00515

PATIENT
  Age: 35 Month
  Sex: Female

DRUGS (2)
  1. CARBOPLATIN [Suspect]
     Indication: OPTIC GLIOMA
  2. VINCRISTINE [Suspect]
     Indication: OPTIC GLIOMA

REACTIONS (1)
  - Haemolytic anaemia [None]
